FAERS Safety Report 6397305-4 (Version None)
Quarter: 2009Q4

REPORT INFORMATION
  Report Type: 
  Country: None (occurrence: None)
  Receive Date: 20091012
  Receipt Date: 20090826
  Transmission Date: 20100525
  Serious: Yes (Other)
  Sender: FDA-Public Use
  Company Number: US-PURDUE-USA-2009-0039895

PATIENT
  Sex: Female

DRUGS (1)
  1. OXYCONTIN [Suspect]
     Indication: ANALGESIC THERAPY
     Dosage: UNK
     Dates: start: 20010925, end: 20021124

REACTIONS (6)
  - DEPRESSION [None]
  - DRUG DEPENDENCE [None]
  - HOT FLUSH [None]
  - MEMORY IMPAIRMENT [None]
  - MUSCLE SPASMS [None]
  - SUICIDAL IDEATION [None]
